FAERS Safety Report 20677799 (Version 3)
Quarter: 2022Q2

REPORT INFORMATION
  Report Type: Report from Study
  Country: US (occurrence: US)
  Receive Date: 20220406
  Receipt Date: 20220606
  Transmission Date: 20220721
  Serious: Yes (Other)
  Sender: FDA-Public Use
  Company Number: US-NOVARTISTESTPH-NVSC2022US077462

PATIENT
  Sex: Male

DRUGS (1)
  1. TASIGNA [Suspect]
     Active Substance: NILOTINIB
     Indication: Philadelphia positive chronic myeloid leukaemia
     Dosage: UNK UNK, BID
     Route: 048

REACTIONS (4)
  - Chronic myeloid leukaemia recurrent [Unknown]
  - Nausea [Unknown]
  - Peripheral swelling [Unknown]
  - Product colour issue [Unknown]
